FAERS Safety Report 20519687 (Version 2)
Quarter: 2022Q1

REPORT INFORMATION
  Report Type: Report from Study
  Country: US (occurrence: US)
  Receive Date: 20220225
  Receipt Date: 20220309
  Transmission Date: 20220423
  Serious: Yes (Hospitalization)
  Sender: FDA-Public Use
  Company Number: US-GLAXOSMITHKLINE-US2022GSK031005

PATIENT
  Age: 69 Year
  Sex: Male
  Weight: 69.5 kg

DRUGS (3)
  1. NIRAPARIB [Suspect]
     Active Substance: NIRAPARIB
     Indication: Lung neoplasm malignant
     Dosage: 200 MG, QD
     Route: 048
     Dates: start: 20211102, end: 20220215
  2. NERATINIB [Suspect]
     Active Substance: NERATINIB
     Indication: Lung neoplasm malignant
     Dosage: 200 MG, QD
     Route: 048
     Dates: start: 20211102, end: 20220215
  3. WARFARIN [Concomitant]
     Active Substance: WARFARIN
     Indication: Deep vein thrombosis
     Dosage: 5 MG, QD
     Route: 048
     Dates: start: 201606

REACTIONS (4)
  - Dyspnoea [Recovering/Resolving]
  - International normalised ratio increased [Recovered/Resolved]
  - Hypoxia [Unknown]
  - Dyspnoea [Unknown]

NARRATIVE: CASE EVENT DATE: 20220216
